FAERS Safety Report 4687454-0 (Version None)
Quarter: 2005Q2

REPORT INFORMATION
  Report Type: 
  Country: None (occurrence: None)
  Receive Date: 20050609
  Receipt Date: 20050609
  Transmission Date: 20051028
  Serious: Yes (Hospitalization)
  Sender: FDA-Public Use
  Company Number: None

PATIENT
  Age: 62 Year
  Sex: Male
  Weight: 85.8 kg

DRUGS (3)
  1. IRINOTECAN     20MG/ML    PFIZER [Suspect]
     Indication: COLON CANCER METASTATIC
     Dosage: 336MG    ONCE Q 21 DAYS    INTRAVENOU
     Route: 042
     Dates: start: 20050513, end: 20050513
  2. CAPECITABINE       500MG + 150 MG       ROCHE [Suspect]
     Indication: COLON CANCER METASTATIC
     Dosage: 1375MG   BID X 14 DAYS   ORAL
     Route: 048
     Dates: start: 20050513, end: 20050520
  3. AVASTIN [Concomitant]

REACTIONS (4)
  - DIARRHOEA [None]
  - FEBRILE NEUTROPENIA [None]
  - NAUSEA [None]
  - VOMITING [None]
